FAERS Safety Report 25308517 (Version 1)
Quarter: 2025Q2

REPORT INFORMATION
  Report Type: Spontaneous
  Country: US (occurrence: US)
  Receive Date: 20250513
  Receipt Date: 20250513
  Transmission Date: 20250716
  Serious: No
  Sender: SANOFI AVENTIS
  Company Number: US-SA-2025SA132598

PATIENT
  Sex: Female

DRUGS (1)
  1. DUPIXENT [Suspect]
     Active Substance: DUPILUMAB
     Indication: Dermatitis atopic
     Dosage: 200 MG, Q4W
     Route: 058
     Dates: start: 202407

REACTIONS (4)
  - Rebound atopic dermatitis [Unknown]
  - Eye swelling [Unknown]
  - Periorbital swelling [Unknown]
  - Eye irritation [Unknown]

NARRATIVE: CASE EVENT DATE: 20250101
